FAERS Safety Report 9258885 (Version 2)
Quarter: 2013Q3

REPORT INFORMATION
  Report Type: Report from Study
  Country: NL (occurrence: NL)
  Receive Date: 20130426
  Receipt Date: 20130802
  Transmission Date: 20140515
  Serious: Yes (Other)
  Sender: FDA-Public Use
  Company Number: NL-ELI_LILLY_AND_COMPANY-NL201304004989

PATIENT
  Age: 65 Year
  Sex: Female
  Weight: 66 kg

DRUGS (7)
  1. TERIPARATIDE [Suspect]
     Indication: OSTEOPOROSIS
     Dosage: 20 UG, QD
     Route: 058
     Dates: start: 20110804, end: 20130415
  2. ARCOXIA [Interacting]
     Dosage: UNK, UNKNOWN
     Route: 065
     Dates: end: 201110
  3. CALCIUM CARBONATE/VITAMIN D3 [Concomitant]
     Indication: OSTEOPOROSIS
     Dosage: 1 DF, UNK
     Route: 048
     Dates: start: 2006
  4. PANTOPRAZOL [Concomitant]
     Dosage: 40 MG, QD
     Route: 048
  5. PERINDOPRIL [Concomitant]
     Indication: HYPERTENSION
     Dosage: 4 MG, QD
     Route: 048
     Dates: end: 201201
  6. PERINDOPRIL [Concomitant]
     Dosage: 4 MG, QD
     Route: 048
     Dates: start: 201205
  7. OLMETEC [Concomitant]

REACTIONS (7)
  - Haematemesis [Recovered/Resolved]
  - Diaphragmatic hernia [Recovered/Resolved]
  - Renal failure [Recovered/Resolved]
  - Helicobacter infection [Recovered/Resolved]
  - Dysphagia [Recovered/Resolved]
  - Odynophagia [Recovered/Resolved]
  - Hypertension [Recovered/Resolved]
